FAERS Safety Report 6942442-6 (Version None)
Quarter: 2010Q3

REPORT INFORMATION
  Report Type: 
  Country: None (occurrence: None)
  Receive Date: 20100826
  Receipt Date: 20100818
  Transmission Date: 20110219
  Serious: Yes (Other)
  Sender: FDA-Public Use
  Company Number: GR-JNJFOC-20100808055

PATIENT
  Age: 64 Year
  Sex: Male

DRUGS (5)
  1. LEVOFLOXACIN [Suspect]
     Indication: PRODUCT USED FOR UNKNOWN INDICATION
     Route: 048
  2. DOXAZOSIN MESILATE [Concomitant]
     Route: 065
  3. CARVEDILOL [Concomitant]
     Route: 065
  4. OLMESARTAN MEDOXOMIL [Concomitant]
     Route: 065
  5. SACCHAROMYCES BOULARDII [Concomitant]
     Route: 065

REACTIONS (1)
  - DIARRHOEA HAEMORRHAGIC [None]
